FAERS Safety Report 4902629-0 (Version None)
Quarter: 2006Q1

REPORT INFORMATION
  Report Type: 
  Country: None (occurrence: None)
  Receive Date: 20060207
  Receipt Date: 20050411
  Transmission Date: 20060701
  Serious: Yes (Death)
  Sender: FDA-Public Use
  Company Number: 2005UW07243

PATIENT
  Age: 77 Year
  Sex: Male
  Weight: 87.3 kg

DRUGS (15)
  1. CRESTOR [Suspect]
     Indication: BLOOD CHOLESTEROL INCREASED
     Route: 048
     Dates: start: 20040701
  2. PLAVIX [Concomitant]
  3. NORVASC [Concomitant]
     Route: 048
  4. FUROSEMIDE [Concomitant]
     Route: 048
  5. METFORMIN HYDROCHLORIDE [Concomitant]
     Indication: DIABETES MELLITUS
     Route: 048
  6. ASPIRIN [Concomitant]
  7. ACTONEL [Concomitant]
  8. AVAPRO [Concomitant]
     Route: 048
  9. SPIRONOLACTONE [Concomitant]
  10. NITROGLYCERIN [Concomitant]
  11. PANTOPRAZOLE SODIUM [Concomitant]
     Route: 048
  12. HUMALOG [Concomitant]
  13. HUMULIN N [Concomitant]
     Dosage: 4/D, 14 AM, 14 NOON, 14 SUPPER, 35 NIGHT
  14. ATENOLOL [Concomitant]
     Route: 048
  15. NOVO-SPRIROTOL [Concomitant]

REACTIONS (6)
  - ASTHENIA [None]
  - DEATH [None]
  - HYPOAESTHESIA [None]
  - MUSCLE SPASMS [None]
  - MUSCLE TIGHTNESS [None]
  - MYALGIA [None]
